FAERS Safety Report 6706570-2 (Version None)
Quarter: 2010Q2

REPORT INFORMATION
  Report Type: 
  Country: None (occurrence: None)
  Receive Date: 20100503
  Receipt Date: 20100420
  Transmission Date: 20101027
  Serious: Yes (Death, Hospitalization, Disabling)
  Sender: FDA-Public Use
  Company Number: FR-ROCHE-653101

PATIENT
  Sex: Female
  Weight: 40 kg

DRUGS (22)
  1. TOCILIZUMAB [Suspect]
     Indication: RHEUMATOID ARTHRITIS
     Dosage: FORM: LIQUIDE. LAST DOSE PRIOR TO SAE: 01 SEP 2009, PERMANENTLY DISCONTINUED
     Route: 042
     Dates: start: 20090702, end: 20090929
  2. METHOTREXATE [Suspect]
     Indication: RHEUMATOID ARTHRITIS
     Dosage: DOSAGE FORM: PILLS, LAST DOSE PRIOR TO SAE: 01 SEP 2009, DOSE BLINDED
     Route: 048
     Dates: start: 20090702, end: 20090901
  3. SIMVASTATIN [Concomitant]
     Dates: start: 20090618
  4. FORLAX [Concomitant]
     Dates: start: 20090618
  5. CALCIDOSE [Concomitant]
     Dosage: TDD: 1 BAG
     Dates: start: 20090618
  6. OXYCONTIN [Concomitant]
     Dates: start: 20090701
  7. OXYCODONE HCL [Concomitant]
     Dates: start: 20090701
  8. LOVENOX [Concomitant]
     Dosage: TDD: 1 INJECTION. FORM: INJECTION.
     Dates: start: 20090826
  9. LOVENOX [Concomitant]
     Dates: start: 20090929
  10. LOVENOX [Concomitant]
     Dates: start: 20091029
  11. DOLIPRANE [Concomitant]
     Dates: start: 20090626
  12. ACUPAN [Concomitant]
     Dates: start: 20090701
  13. PREDNISONE TAB [Concomitant]
     Dates: start: 20090828
  14. PREDNISONE TAB [Concomitant]
  15. CALCIUM/VITAMIN D [Concomitant]
     Dosage: TDD: 100/400 UI
     Dates: start: 20090618
  16. OXYCODONE [Concomitant]
     Dates: start: 20090701
  17. DEXERYL [Concomitant]
     Dosage: DRUG REPORTED AS: DEKERYL.
     Dates: start: 20091027
  18. XYZAL [Concomitant]
     Dates: start: 20091031
  19. DIPROSONE [Concomitant]
     Dosage: DAILY DOSE: 1 APPLICATION.
     Dates: start: 20091027
  20. CALCIUM [Concomitant]
     Dates: start: 20090618
  21. PARACETAMOL [Concomitant]
     Dates: start: 20090626
  22. FORTUM [Concomitant]
     Dates: start: 20090627, end: 20091105

REACTIONS (4)
  - ANAEMIA [None]
  - LUNG NEOPLASM [None]
  - RHEUMATOID ARTHRITIS [None]
  - SEPSIS [None]
